FAERS Safety Report 21322123 (Version 9)
Quarter: 2023Q2

REPORT INFORMATION
  Report Type: Report from Study
  Country: AR (occurrence: AR)
  Receive Date: 20220912
  Receipt Date: 20230609
  Transmission Date: 20230721
  Serious: Yes (Other)
  Sender: FDA-Public Use
  Company Number: AR-NOVARTISPH-NVSC2022AR203320

PATIENT
  Age: 75 Year
  Sex: Female

DRUGS (2)
  1. KISQALI [Suspect]
     Active Substance: RIBOCICLIB
     Indication: Breast cancer metastatic
     Dosage: 200 MG, TID
     Route: 048
     Dates: start: 20220310
  2. KISQALI [Suspect]
     Active Substance: RIBOCICLIB
     Dosage: 600 MG, QD
     Route: 048
     Dates: start: 20220310, end: 20230516

REACTIONS (19)
  - Cellulitis [Recovered/Resolved]
  - Erysipelas [Recovered/Resolved]
  - Metastases to bone [Unknown]
  - Metastases to liver [Not Recovered/Not Resolved]
  - Metastasis [Unknown]
  - Bronchitis [Unknown]
  - Bone disorder [Unknown]
  - Liver disorder [Unknown]
  - Breast cancer metastatic [Unknown]
  - Malignant neoplasm progression [Unknown]
  - Metastases to spine [Not Recovered/Not Resolved]
  - Decreased immune responsiveness [Unknown]
  - Skin infection [Unknown]
  - Condition aggravated [Unknown]
  - Hypertension [Unknown]
  - Pyrexia [Unknown]
  - Headache [Not Recovered/Not Resolved]
  - Productive cough [Unknown]
  - Inappropriate schedule of product administration [Unknown]

NARRATIVE: CASE EVENT DATE: 20220907
